FAERS Safety Report 5202658-6 (Version None)
Quarter: 2006Q4

REPORT INFORMATION
  Report Type: 
  Country: None (occurrence: None)
  Receive Date: 20061018
  Receipt Date: 20050523
  Transmission Date: 20070319
  Serious: Yes (Other)
  Sender: FDA-Public Use
  Company Number: PHEH2005US02903

PATIENT
  Age: 47 Year
  Sex: Female

DRUGS (3)
  1. ZOMETA [Suspect]
     Indication: METASTASES TO BONE
     Dosage: 4 MG, QMO, INTRAVENOUS
     Route: 042
     Dates: start: 20040201, end: 20050201
  2. FEMARA [Concomitant]
  3. LAMICTAL [Concomitant]

REACTIONS (7)
  - FACIAL NERVE DISORDER [None]
  - HYPOAESTHESIA [None]
  - METASTASES TO BONE [None]
  - METASTASES TO CENTRAL NERVOUS SYSTEM [None]
  - PAIN IN JAW [None]
  - PARAESTHESIA [None]
  - TRIGEMINAL NERVE DISORDER [None]
